FAERS Safety Report 4771149-9 (Version None)
Quarter: 2005Q3

REPORT INFORMATION
  Report Type: 
  Country: None (occurrence: None)
  Receive Date: 20050914
  Receipt Date: 20050815
  Transmission Date: 20060218
  Serious: Yes (Death, Hospitalization)
  Sender: FDA-Public Use
  Company Number: 200512804GDS

PATIENT
  Age: 74 Year
  Sex: Female
  Weight: 155 kg

DRUGS (11)
  1. ASPIRIN [Suspect]
  2. WARFARIN SODIUM [Suspect]
     Indication: ATRIAL FIBRILLATION
     Dosage: 7 MG, TOTAL DAILY,
  3. ENOXAPARIN SODIUM [Suspect]
     Indication: ATRIAL FIBRILLATION
     Dosage: 120 MG, BID,
  4. CEFTRIAXONE [Concomitant]
  5. LEVOFLOXACIN [Concomitant]
  6. MONTELUKAST [Concomitant]
  7. FLUTICASONE PROPIONATE [Concomitant]
  8. INSULIN [Concomitant]
  9. AMIODARONE HCL [Concomitant]
  10. SIMVASTATIN [Concomitant]
  11. FUROSEMIDE [Concomitant]

REACTIONS (12)
  - ACTIVATED PARTIAL THROMBOPLASTIN TIME PROLONGED [None]
  - BLOOD CREATININE INCREASED [None]
  - DRUG INTERACTION [None]
  - DYSPNOEA [None]
  - FATIGUE [None]
  - HAEMATOCRIT DECREASED [None]
  - HAEMOGLOBIN DECREASED [None]
  - INTERNATIONAL NORMALISED RATIO DECREASED [None]
  - LOBAR PNEUMONIA [None]
  - PROTHROMBIN TIME PROLONGED [None]
  - RENAL FUNCTION TEST ABNORMAL [None]
  - RETROPERITONEAL HAEMORRHAGE [None]
